FAERS Safety Report 18912330 (Version 2)
Quarter: 2021Q1

REPORT INFORMATION
  Report Type: Spontaneous
  Country: US (occurrence: US)
  Receive Date: 20210219
  Receipt Date: 20210224
  Transmission Date: 20210420
  Serious: No
  Sender: FDA-Public Use
  Company Number: US-JNJFOC-20210208095

PATIENT
  Age: 36 Year
  Sex: Male
  Weight: 81.72 kg

DRUGS (1)
  1. PEPCID AC [Suspect]
     Active Substance: FAMOTIDINE
     Indication: GASTRIC DISORDER
     Dosage: PRODUCT LAST ADMIN DATE: 01?FEB?2021; USING IT FOR ABOUT 10 DAYS
     Route: 048
     Dates: start: 20210121

REACTIONS (1)
  - Erection increased [Not Recovered/Not Resolved]

NARRATIVE: CASE EVENT DATE: 20210124
